FAERS Safety Report 17192569 (Version 1)
Quarter: 2019Q4

REPORT INFORMATION
  Report Type: Spontaneous
  Country: JP (occurrence: JP)
  Receive Date: 20191223
  Receipt Date: 20191223
  Transmission Date: 20200122
  Serious: Yes (Hospitalization)
  Sender: FDA-Public Use
  Company Number: JP-JNJFOC-20181109638

PATIENT
  Age: 83 Year
  Sex: Female

DRUGS (1)
  1. RIVAROXABAN [Suspect]
     Active Substance: RIVAROXABAN
     Indication: CEREBRAL INFARCTION
     Route: 048

REACTIONS (4)
  - Phaeochromocytoma [Recovering/Resolving]
  - Blood pressure decreased [Recovering/Resolving]
  - Adrenal neoplasm [Recovering/Resolving]
  - Tumour haemorrhage [Recovering/Resolving]
